FAERS Safety Report 13876435 (Version 1)
Quarter: 2017Q3

REPORT INFORMATION
  Report Type: Spontaneous
  Country: DK (occurrence: DK)
  Receive Date: 20170817
  Receipt Date: 20170817
  Transmission Date: 20171127
  Serious: Yes (Other)
  Sender: FDA-Public Use
  Company Number: DK-FRESENIUS KABI-FK201706940

PATIENT
  Age: 77 Year
  Sex: Male

DRUGS (2)
  1. AMIODARONE HCL (MANUFACTURER UNKNOWN) [Suspect]
     Active Substance: AMIODARONE HYDROCHLORIDE
     Indication: PRODUCT USED FOR UNKNOWN INDICATION
     Route: 042
  2. AMIODARONE HCL (MANUFACTURER UNKNOWN) [Suspect]
     Active Substance: AMIODARONE HYDROCHLORIDE
     Route: 042

REACTIONS (5)
  - Skin necrosis [Recovered/Resolved with Sequelae]
  - Onychomadesis [Recovered/Resolved with Sequelae]
  - Blister [Recovered/Resolved with Sequelae]
  - Incorrect route of drug administration [Recovered/Resolved with Sequelae]
  - Oedema [Recovered/Resolved with Sequelae]
